FAERS Safety Report 9966911 (Version 1)
Quarter: 2014Q1

REPORT INFORMATION
  Report Type: Spontaneous
  Country: DK (occurrence: DK)
  Receive Date: 20140305
  Receipt Date: 20140305
  Transmission Date: 20141002
  Serious: Yes (Other)
  Sender: FDA-Public Use
  Company Number: PHHY2014DK022988

PATIENT
  Sex: Male

DRUGS (3)
  1. DICILLIN [Suspect]
     Indication: ABSCESS
     Dosage: 1 G, TID
     Dates: start: 20130809, end: 20130811
  2. ZYPREXA [Suspect]
     Indication: SCHIZOPHRENIA
     Dosage: 30 MG, UNK
     Dates: start: 2003
  3. RIVOTRIL [Concomitant]
     Dosage: 0.25 MG, UNK

REACTIONS (3)
  - Self-injurious ideation [Unknown]
  - Abscess [Unknown]
  - Overdose [Unknown]
